FAERS Safety Report 10493418 (Version 2)
Quarter: 2016Q1

REPORT INFORMATION
  Report Type: Spontaneous
  Country: US (occurrence: US)
  Receive Date: 20141002
  Receipt Date: 20160107
  Transmission Date: 20160525
  Serious: No
  Sender: FDA-Public Use
  Company Number: US-GLAXOSMITHKLINE-A1083705A

PATIENT
  Sex: Female

DRUGS (2)
  1. FLONASE [Suspect]
     Active Substance: FLUTICASONE PROPIONATE
     Indication: PRODUCT USED FOR UNKNOWN INDICATION
     Dosage: 50MCG, UNKNOWN DOSING
     Route: 045
     Dates: start: 20060207
  2. ADVAIR DISKUS [Suspect]
     Active Substance: FLUTICASONE PROPIONATE\SALMETEROL XINAFOATE
     Indication: ASTHMA
     Dosage: UNKNOWN DOSING.ENDED 24MAR2008; STARTED AGAIN 20 OCT2009.
     Route: 055
     Dates: start: 20030701

REACTIONS (3)
  - Sinus disorder [Unknown]
  - Increased upper airway secretion [Unknown]
  - Rhinorrhoea [Unknown]
